FAERS Safety Report 11690188 (Version 1)
Quarter: 2015Q4

REPORT INFORMATION
  Report Type: Spontaneous
  Country: US (occurrence: US)
  Receive Date: 20151102
  Receipt Date: 20151102
  Transmission Date: 20160304
  Serious: Yes (Other)
  Sender: FDA-Public Use
  Company Number: US-VIIV HEALTHCARE LIMITED-US2015GSK073145

PATIENT
  Sex: Female

DRUGS (2)
  1. EPZICOM [Suspect]
     Active Substance: ABACAVIR SULFATE\LAMIVUDINE
     Indication: HIV INFECTION
  2. LEXIVA [Suspect]
     Active Substance: FOSAMPRENAVIR CALCIUM
     Indication: HIV INFECTION

REACTIONS (7)
  - Hypertension [Not Recovered/Not Resolved]
  - Blindness [Not Recovered/Not Resolved]
  - Tremor [Not Recovered/Not Resolved]
  - Arthropathy [Unknown]
  - Pain [Not Recovered/Not Resolved]
  - Glaucoma [Not Recovered/Not Resolved]
  - Knee operation [Unknown]
